FAERS Safety Report 5068546-3 (Version None)
Quarter: 2006Q3

REPORT INFORMATION
  Report Type: 
  Country: None (occurrence: None)
  Receive Date: 20060802
  Receipt Date: 20051117
  Transmission Date: 20061208
  Serious: No
  Sender: FDA-Public Use
  Company Number: US-BRISTOL-MYERS SQUIBB COMPANY-13185012

PATIENT
  Age: 49 Year
  Sex: Female
  Weight: 70 kg

DRUGS (3)
  1. COUMADIN [Suspect]
     Indication: SUBCLAVIAN ARTERY THROMBOSIS
     Dates: start: 20051110
  2. CEPHALEXIN [Concomitant]
  3. ENOXAPARIN SODIUM [Concomitant]

REACTIONS (2)
  - ASTHENIA [None]
  - DIPLOPIA [None]
